FAERS Safety Report 9985214 (Version 1)
Quarter: 2014Q1

REPORT INFORMATION
  Report Type: Spontaneous
  Country: IT (occurrence: IT)
  Receive Date: 20140307
  Receipt Date: 20140307
  Transmission Date: 20141002
  Serious: Yes (Other)
  Sender: FDA-Public Use
  Company Number: IT-ACTAVIS-2014-03777

PATIENT
  Age: 41 Year
  Sex: Female
  Weight: 47 kg

DRUGS (9)
  1. OXALIPLATIN (UNKNOWN) [Suspect]
     Indication: PANCREATIC CARCINOMA
     Dosage: 100 MG, TOTAL
     Route: 042
  2. FLUOROURACIL (UNKNOWN) [Suspect]
     Indication: PANCREATIC CARCINOMA
     Dosage: 500 MG, UNK
     Route: 042
  3. IRINOTECAN [Concomitant]
     Indication: PRODUCT USED FOR UNKNOWN INDICATION
     Dosage: 200 MG, UNK
     Route: 042
  4. TRIMETON                           /00072502/ [Concomitant]
     Indication: PREMEDICATION
     Dosage: 1 VIAL IN PHYSIOLOGICAL SOLUTION 100, UNK
     Route: 065
  5. ALOXI [Concomitant]
     Indication: PREMEDICATION
     Dosage: 1 VIAL IN BOLUS, UNK
     Route: 065
  6. PLASIL                             /00041901/ [Concomitant]
     Indication: PREMEDICATION
     Dosage: 1 VIAL IN PHYSIOLOGICAL SOLUTION 100, UNK
     Route: 065
  7. DEXAMETHASONE [Concomitant]
     Indication: PREMEDICATION
     Dosage: 16 MG IN PHYSIOLOGICAL SOLUTION 250, UNK
     Route: 065
  8. FOLINIC ACID [Concomitant]
     Indication: PREMEDICATION
     Dosage: 200 MG IN GLUCOSE 500, UNK
     Route: 065
  9. ATROPINE [Concomitant]
     Indication: PREMEDICATION
     Dosage: 1 VIAL, UNK
     Route: 058

REACTIONS (3)
  - Dyslalia [Recovered/Resolved]
  - Hyperhidrosis [Recovered/Resolved]
  - Laryngospasm [Recovered/Resolved]
